FAERS Safety Report 8379013-3 (Version None)
Quarter: 2012Q2

REPORT INFORMATION
  Report Type: 
  Country: None (occurrence: None)
  Receive Date: 20120522
  Receipt Date: 20120522
  Transmission Date: 20120825
  Serious: Yes (Hospitalization)
  Sender: FDA-Public Use
  Company Number: None

PATIENT
  Sex: Male
  Weight: 88.4514 kg

DRUGS (1)
  1. TOBRADEX [Suspect]
     Indication: INVESTIGATION
     Dosage: 2 DROPS DAILY
     Dates: start: 20120316, end: 20120325

REACTIONS (4)
  - EYE DISORDER [None]
  - EXPIRED DRUG ADMINISTERED [None]
  - CONVULSION [None]
  - EXCORIATION [None]
